FAERS Safety Report 7290830-3 (Version None)
Quarter: 2011Q1

REPORT INFORMATION
  Report Type: 
  Country: None (occurrence: None)
  Receive Date: 20110214
  Receipt Date: 20110201
  Transmission Date: 20110831
  Serious: Yes (Hospitalization)
  Sender: FDA-Public Use
  Company Number: AT-ASTRAZENECA-2011SE06286

PATIENT
  Age: 28 Year
  Sex: Female

DRUGS (19)
  1. SEROQUEL [Suspect]
     Route: 048
     Dates: start: 20101103, end: 20101105
  2. SEROQUEL [Suspect]
     Route: 048
     Dates: start: 20101214, end: 20110127
  3. TEMESTA [Concomitant]
     Dates: start: 20101202, end: 20110127
  4. SEROQUEL [Suspect]
     Route: 048
  5. SOLIAN [Suspect]
     Dates: start: 20101103, end: 20101124
  6. CIPRALEX [Suspect]
     Dates: start: 20101103, end: 20101121
  7. TEMESTA [Concomitant]
     Dates: start: 20101111, end: 20101121
  8. LISINOPRIL [Concomitant]
     Dates: start: 20101103, end: 20110127
  9. ABILIFY [Concomitant]
     Dates: start: 20101126, end: 20101206
  10. CIPRALEX [Suspect]
     Dates: start: 20101122, end: 20101206
  11. CIPRALEX [Suspect]
     Dates: start: 20101207, end: 20110127
  12. TEMESTA [Concomitant]
     Dates: start: 20101103, end: 20101110
  13. TOPAMAX [Concomitant]
     Dates: start: 20101105, end: 20101209
  14. KALIUM [Concomitant]
     Dates: start: 20101103, end: 20110127
  15. HALDOL [Suspect]
     Dates: start: 20101105, end: 20101119
  16. TEMESTA [Concomitant]
     Dates: start: 20101122, end: 20101201
  17. AMLODIPINE [Concomitant]
     Dates: start: 20101103, end: 20110127
  18. ABILIFY [Concomitant]
     Dates: start: 20101207, end: 20110127
  19. TOPAMAX [Concomitant]
     Dates: start: 20101103, end: 20101104

REACTIONS (4)
  - BRADYCARDIA [None]
  - LEUKOPENIA [None]
  - GRAND MAL CONVULSION [None]
  - ELECTROCARDIOGRAM QT PROLONGED [None]
